FAERS Safety Report 7296130-X (Version None)
Quarter: 2011Q1

REPORT INFORMATION
  Report Type: 
  Country: None (occurrence: None)
  Receive Date: 20110204
  Receipt Date: 20110117
  Transmission Date: 20110831
  Serious: Yes (Death, Other)
  Sender: FDA-Public Use
  Company Number: 813345

PATIENT
  Age: 66 Year
  Sex: Male

DRUGS (5)
  1. IFOSFAMIDE [Suspect]
     Indication: MALIGNANT LYMPHOID NEOPLASM
     Dosage: 5.6 G GRAMS
     Dates: start: 20040927, end: 20040927
  2. MESNA [Suspect]
     Indication: PRODUCT USED FOR UNKNOWN INDICATION
     Dates: start: 20040927
  3. GEMZAR [Suspect]
     Indication: MALIGNANT LYMPHOID NEOPLASM
     Dosage: 1.9 G GRAMS, INTRAVENUS
     Route: 042
     Dates: start: 20040927, end: 20040927
  4. DEXAMETHASONE [Suspect]
     Indication: PRODUCT USED FOR UNKNOWN INDICATION
     Dates: start: 20040927
  5. VINORELBINE TARTRATE [Suspect]
     Indication: MALIGNANT LYMPHOID NEOPLASM
     Dosage: 47 MG MILLIGRAM(S),
     Dates: start: 20040927, end: 20040927

REACTIONS (13)
  - ENCEPHALOPATHY [None]
  - CELLULITIS [None]
  - CONFUSIONAL STATE [None]
  - SOMNOLENCE [None]
  - ATRIAL FIBRILLATION [None]
  - PNEUMOCYSTIS JIROVECI PNEUMONIA [None]
  - WEIGHT DECREASED [None]
  - UNRESPONSIVE TO STIMULI [None]
  - ATRIAL FLUTTER [None]
  - HYPOPHOSPHATAEMIA [None]
  - DIARRHOEA [None]
  - NEUTROPENIA [None]
  - THROMBOCYTOPENIA [None]
